FAERS Safety Report 16918066 (Version 3)
Quarter: 2020Q3

REPORT INFORMATION
  Report Type: Spontaneous
  Country: US (occurrence: US)
  Receive Date: 20191015
  Receipt Date: 20200703
  Transmission Date: 20201102
  Serious: Yes (Other)
  Sender: FDA-Public Use
  Company Number: US-SA-2019SA283888

PATIENT

DRUGS (1)
  1. LEMTRADA [Suspect]
     Active Substance: ALEMTUZUMAB
     Indication: MULTIPLE SCLEROSIS
     Dosage: UNK
     Route: 041
     Dates: start: 20150622, end: 20171018

REACTIONS (6)
  - Amyloidosis [Unknown]
  - Pulmonary mass [Not Recovered/Not Resolved]
  - Waldenstrom^s macroglobulinaemia [Not Recovered/Not Resolved]
  - Cough [Unknown]
  - Lymphoplasmacytoid lymphoma/immunocytoma [Unknown]
  - Lymphadenopathy [Not Recovered/Not Resolved]

NARRATIVE: CASE EVENT DATE: 201902
